FAERS Safety Report 12174538 (Version 2)
Quarter: 2016Q1

REPORT INFORMATION
  Report Type: Report from Study
  Country: CN (occurrence: CN)
  Receive Date: 20160311
  Receipt Date: 20160315
  Transmission Date: 20160526
  Serious: Yes (Death, Hospitalization)
  Sender: FDA-Public Use
  Company Number: PHHY2016CN030781

PATIENT
  Age: 28 Year
  Sex: Female

DRUGS (6)
  1. INTERFERON [Concomitant]
     Active Substance: INTERFERON
     Indication: FATIGUE
     Route: 065
  2. INTERFERON [Concomitant]
     Active Substance: INTERFERON
     Indication: PYREXIA
  3. GLIVEC [Suspect]
     Active Substance: IMATINIB MESYLATE
     Dosage: 400 MG, QD
     Route: 048
     Dates: start: 201601
  4. HYDROXYUREA. [Concomitant]
     Active Substance: HYDROXYUREA
     Indication: FATIGUE
     Route: 065
  5. HYDROXYUREA. [Concomitant]
     Active Substance: HYDROXYUREA
     Indication: PYREXIA
  6. GLIVEC [Suspect]
     Active Substance: IMATINIB MESYLATE
     Indication: CHRONIC MYELOID LEUKAEMIA
     Dosage: 400 MG, QD
     Route: 048
     Dates: start: 201512, end: 201601

REACTIONS (13)
  - Pyrexia [Unknown]
  - Respiratory failure [Not Recovered/Not Resolved]
  - Platelet count decreased [Recovered/Resolved]
  - Cardiac failure acute [Unknown]
  - Pulmonary oedema [Unknown]
  - Ascites [Not Recovered/Not Resolved]
  - Death [Fatal]
  - Pain in extremity [Unknown]
  - Hypoproteinaemia [Not Recovered/Not Resolved]
  - Arthralgia [Unknown]
  - Pleural effusion [Not Recovered/Not Resolved]
  - Blast crisis in myelogenous leukaemia [Not Recovered/Not Resolved]
  - Pneumonia [Not Recovered/Not Resolved]

NARRATIVE: CASE EVENT DATE: 201601
